FAERS Safety Report 7221073-7 (Version None)
Quarter: 2011Q1

REPORT INFORMATION
  Report Type: 
  Country: None (occurrence: None)
  Receive Date: 20110112
  Receipt Date: 20110108
  Transmission Date: 20110831
  Serious: No
  Sender: FDA-Public Use
  Company Number: US-PFIZER INC-2011005070

PATIENT
  Sex: Female

DRUGS (2)
  1. PRISTIQ [Suspect]
     Indication: ANXIETY
     Dosage: UNK
     Route: 048
     Dates: start: 20110103
  2. LEXAPRO [Suspect]
     Indication: ANXIETY
     Dosage: UNK

REACTIONS (4)
  - INCREASED APPETITE [None]
  - WEIGHT INCREASED [None]
  - DRUG INEFFECTIVE [None]
  - ANXIETY [None]
